FAERS Safety Report 8900658 (Version 1)
Quarter: 2012Q4

REPORT INFORMATION
  Report Type: 
  Country: DE (occurrence: DE)
  Receive Date: 20121109
  Receipt Date: 20121109
  Transmission Date: 20130627
  Serious: Yes (Hospitalization)
  Sender: FDA-Public Use
  Company Number: DE-INCYTE CORPORATION-2012IN002207

PATIENT
  Sex: Male

DRUGS (2)
  1. JAKAVI [Suspect]
     Dosage: 20 mg, 2x qd
  2. LITALIR [Concomitant]
     Dosage: 1 gm, QD

REACTIONS (1)
  - Pneumonia [Unknown]
